FAERS Safety Report 26051765 (Version 1)
Quarter: 2025Q4

REPORT INFORMATION
  Report Type: Report from Study
  Country: CA (occurrence: CA)
  Receive Date: 20251117
  Receipt Date: 20251117
  Transmission Date: 20260118
  Serious: Yes (Hospitalization)
  Sender: JAZZ
  Company Number: CA-JAZZ PHARMACEUTICALS-2025-CA-026165

PATIENT
  Sex: Female

DRUGS (1)
  1. EPIDIOLEX [Suspect]
     Active Substance: CANNABIDIOL
     Indication: Product used for unknown indication
     Dosage: 0.6 MILLILITER, BID
     Dates: start: 20250409

REACTIONS (1)
  - Hospitalisation [Unknown]
